FAERS Safety Report 6228554-3 (Version None)
Quarter: 2009Q2

REPORT INFORMATION
  Report Type: 
  Country: None (occurrence: None)
  Receive Date: 20090612
  Receipt Date: 20090605
  Transmission Date: 20091009
  Serious: Yes (Hospitalization)
  Sender: FDA-Public Use
  Company Number: US-GENENTECH-274796

PATIENT
  Age: 62 Year
  Sex: Female

DRUGS (9)
  1. BEVACIZUMAB [Suspect]
     Indication: BREAST CANCER
     Dosage: 15 MG/KG, Q21D
     Route: 042
     Dates: start: 20081205, end: 20081222
  2. LETROZOLE [Suspect]
     Indication: BREAST CANCER
     Dosage: 2.5 MG, QDX21
     Route: 048
     Dates: start: 20081205, end: 20081222
  3. FENTANYL [Concomitant]
     Indication: DRUG USE FOR UNKNOWN INDICATION
  4. GLIPIZIDE [Concomitant]
     Indication: DRUG USE FOR UNKNOWN INDICATION
  5. HYDROCODONE BITARTRATE [Concomitant]
     Indication: DRUG USE FOR UNKNOWN INDICATION
  6. LISINOPRIL [Concomitant]
     Indication: DRUG USE FOR UNKNOWN INDICATION
  7. METFORMIN HYDROCHLORIDE [Concomitant]
     Indication: DRUG USE FOR UNKNOWN INDICATION
  8. NIASPAN [Concomitant]
     Indication: DRUG USE FOR UNKNOWN INDICATION
  9. REGLAN [Concomitant]
     Indication: DRUG USE FOR UNKNOWN INDICATION

REACTIONS (2)
  - HYPERKALAEMIA [None]
  - RENAL FAILURE [None]
